FAERS Safety Report 18958567 (Version 3)
Quarter: 2021Q2

REPORT INFORMATION
  Report Type: Report from Study
  Country: NL (occurrence: NL)
  Receive Date: 20210302
  Receipt Date: 20210609
  Transmission Date: 20210717
  Serious: Yes (Death, Other)
  Sender: FDA-Public Use
  Company Number: NL-TAKEDA-2021TUS011649

PATIENT
  Age: 77 Year
  Sex: Female

DRUGS (10)
  1. COAGULATION FACTOR VIII (PORCINE, RECOMBINANT) [Suspect]
     Active Substance: ANTIHEMOPHILIC FACTOR PORCINE, B-DOMAIN TRUNCATED RECOMBINANT
     Dosage: 1500 INTERNATIONAL UNIT
     Route: 042
     Dates: start: 20170323, end: 20170323
  2. COAGULATION FACTOR VIII (PORCINE, RECOMBINANT) [Suspect]
     Active Substance: ANTIHEMOPHILIC FACTOR PORCINE, B-DOMAIN TRUNCATED RECOMBINANT
     Dosage: 1500 UNK, QID
     Route: 042
     Dates: start: 20170516, end: 20170522
  3. COAGULATION FACTOR VIII (PORCINE, RECOMBINANT) [Suspect]
     Active Substance: ANTIHEMOPHILIC FACTOR PORCINE, B-DOMAIN TRUNCATED RECOMBINANT
     Dosage: 1500 INTERNATIONAL UNIT
     Route: 042
     Dates: start: 20170323, end: 20170323
  4. COAGULATION FACTOR VIII (PORCINE, RECOMBINANT) [Suspect]
     Active Substance: ANTIHEMOPHILIC FACTOR PORCINE, B-DOMAIN TRUNCATED RECOMBINANT
     Dosage: 1500 UNK, BID
     Route: 042
     Dates: start: 20170523, end: 20170523
  5. COAGULATION FACTOR VIII (PORCINE, RECOMBINANT) [Suspect]
     Active Substance: ANTIHEMOPHILIC FACTOR PORCINE, B-DOMAIN TRUNCATED RECOMBINANT
     Dosage: 1500 UNK, BID
     Route: 042
     Dates: start: 20170523, end: 20170523
  6. COAGULATION FACTOR VIII (PORCINE, RECOMBINANT) [Suspect]
     Active Substance: ANTIHEMOPHILIC FACTOR PORCINE, B-DOMAIN TRUNCATED RECOMBINANT
     Dosage: 1000 INTERNATIONAL UNIT, BID
     Route: 042
     Dates: start: 20170513, end: 20170515
  7. COAGULATION FACTOR VIII (PORCINE, RECOMBINANT) [Suspect]
     Active Substance: ANTIHEMOPHILIC FACTOR PORCINE, B-DOMAIN TRUNCATED RECOMBINANT
     Dosage: 1000 INTERNATIONAL UNIT, BID
     Route: 042
     Dates: start: 20170513, end: 20170515
  8. COAGULATION FACTOR VIII (PORCINE, RECOMBINANT) [Suspect]
     Active Substance: ANTIHEMOPHILIC FACTOR PORCINE, B-DOMAIN TRUNCATED RECOMBINANT
     Indication: HAEMORRHAGE
     Dosage: 3500 INTERNATIONAL UNIT
     Route: 042
     Dates: start: 20170512, end: 20170512
  9. COAGULATION FACTOR VIII (PORCINE, RECOMBINANT) [Suspect]
     Active Substance: ANTIHEMOPHILIC FACTOR PORCINE, B-DOMAIN TRUNCATED RECOMBINANT
     Indication: HAEMORRHAGE
     Dosage: 3500 INTERNATIONAL UNIT
     Route: 042
     Dates: start: 20170512, end: 20170512
  10. COAGULATION FACTOR VIII (PORCINE, RECOMBINANT) [Suspect]
     Active Substance: ANTIHEMOPHILIC FACTOR PORCINE, B-DOMAIN TRUNCATED RECOMBINANT
     Dosage: 1500 UNK, QID
     Route: 042
     Dates: start: 20170516, end: 20170522

REACTIONS (1)
  - Duodenal ulcer haemorrhage [Fatal]

NARRATIVE: CASE EVENT DATE: 20170404
